FAERS Safety Report 5701295-4 (Version None)
Quarter: 2008Q2

REPORT INFORMATION
  Report Type: 
  Country: None (occurrence: None)
  Receive Date: 20080410
  Receipt Date: 20080331
  Transmission Date: 20081010
  Serious: Yes (Hospitalization)
  Sender: FDA-Public Use
  Company Number: NL-BRISTOL-MYERS SQUIBB COMPANY-14138713

PATIENT
  Age: 66 Year
  Sex: Male

DRUGS (6)
  1. CETUXIMAB [Suspect]
     Indication: NON-SMALL CELL LUNG CANCER
     Dosage: RECENT INFUSION ON 11MAR08
     Route: 042
     Dates: start: 20080219
  2. CARBOPLATIN [Suspect]
     Indication: NON-SMALL CELL LUNG CANCER
     Dosage: RECENT INFUSION ON 05FEB08
     Route: 042
     Dates: start: 20080115
  3. CISPLATIN [Suspect]
     Indication: NON-SMALL CELL LUNG CANCER
     Dosage: RECENT INFUSION ON 04MAR08,(7DAYS). DOSE REDUCED TO 40MG/M2 FROM UNKNOWN-ONGOING
     Route: 042
     Dates: start: 20080226
  4. GEMCITABINE [Suspect]
     Indication: NON-SMALL CELL LUNG CANCER
     Dosage: RECENT INFUSION 12FEB08.
     Route: 042
     Dates: start: 20080115
  5. VINORELBINE [Suspect]
     Indication: NON-SMALL CELL LUNG CANCER
     Dosage: RECENT INFUSION ON 04MAR08.
     Route: 042
     Dates: start: 20080226
  6. RADIATION THERAPY [Suspect]
     Indication: NON-SMALL CELL LUNG CANCER

REACTIONS (3)
  - DEHYDRATION [None]
  - DYSPHAGIA [None]
  - FLUID INTAKE REDUCED [None]
